FAERS Safety Report 18618330 (Version 2)
Quarter: 2023Q1

REPORT INFORMATION
  Report Type: Spontaneous
  Country: AU (occurrence: AU)
  Receive Date: 20201215
  Receipt Date: 20230301
  Transmission Date: 20230418
  Serious: Yes (Life-Threatening, Other)
  Sender: FDA-Public Use
  Company Number: AU-MLMSERVICE-20190308-1655805-1

PATIENT
  Age: 38 Year
  Sex: Female

DRUGS (8)
  1. ENOXAPARIN SODIUM [Suspect]
     Active Substance: ENOXAPARIN SODIUM
     Indication: Induction of anaesthesia
     Dosage: UNK
  2. DEXAMETHASONE [Suspect]
     Active Substance: DEXAMETHASONE
     Indication: Induction of anaesthesia
     Dosage: INJECTION 1.9 MG
  3. LIDOCAINE HYDROCHLORIDE [Suspect]
     Active Substance: LIDOCAINE HYDROCHLORIDE
     Indication: Induction of anaesthesia
     Dosage: INJECTION 1 PERCENT
  4. CEFAZOLIN [Suspect]
     Active Substance: CEFAZOLIN
     Indication: Induction of anaesthesia
     Dosage: UNK
  5. ONDANSETRON HYDROCHLORIDE [Suspect]
     Active Substance: ONDANSETRON HYDROCHLORIDE
     Indication: Induction of anaesthesia
     Dosage: ORODISPERSIBLE TABLET
  6. FENTANYL [Suspect]
     Active Substance: FENTANYL
     Indication: Induction of anaesthesia
     Dosage: UNK
  7. PROPOFOL [Suspect]
     Active Substance: PROPOFOL
     Indication: Induction of anaesthesia
     Dosage: INJECTION 1 PERCENT
  8. PARECOXIB [Suspect]
     Active Substance: PARECOXIB
     Indication: Induction of anaesthesia
     Dosage: UNK

REACTIONS (3)
  - Cardiac arrest [Unknown]
  - Hypotension [Unknown]
  - Type I hypersensitivity [Unknown]
